FAERS Safety Report 18552876 (Version 2)
Quarter: 2020Q4

REPORT INFORMATION
  Report Type: Spontaneous
  Country: IT (occurrence: IT)
  Receive Date: 20201127
  Receipt Date: 20201215
  Transmission Date: 20210114
  Serious: Yes (Death, Hospitalization, Other)
  Sender: FDA-Public Use
  Company Number: IT-AUROBINDO-AUR-APL-2020-058606

PATIENT
  Age: 54 Year
  Sex: Female

DRUGS (1)
  1. PARACETAMOL TABLET [Suspect]
     Active Substance: ACETAMINOPHEN
     Indication: PYREXIA
     Dosage: UNK
     Route: 048

REACTIONS (10)
  - Accidental poisoning [Fatal]
  - Metabolic acidosis [Unknown]
  - Hepatitis [Unknown]
  - Acute hepatic failure [Unknown]
  - Nausea [Unknown]
  - Renal failure [Unknown]
  - Encephalopathy [Unknown]
  - Bradycardia [Fatal]
  - Vomiting [Unknown]
  - Jaundice [Unknown]
